FAERS Safety Report 6952498-2 (Version None)
Quarter: 2010Q3

REPORT INFORMATION
  Report Type: 
  Country: None (occurrence: None)
  Receive Date: 20100829
  Receipt Date: 20100503
  Transmission Date: 20110219
  Serious: No
  Sender: FDA-Public Use
  Company Number: US-ABBOTT-10P-163-0642852-00

PATIENT
  Sex: Male
  Weight: 88.53 kg

DRUGS (1)
  1. NIASPAN [Suspect]
     Indication: HIGH DENSITY LIPOPROTEIN DECREASED
     Dosage: 1000 MG DAILY
     Dates: start: 20080101

REACTIONS (3)
  - HOT FLUSH [None]
  - OPTIC NERVE SHEATH HAEMORRHAGE [None]
  - PRURITUS [None]
